FAERS Safety Report 13429190 (Version 3)
Quarter: 2018Q1

REPORT INFORMATION
  Report Type: Report from Study
  Country: CA (occurrence: CA)
  Receive Date: 20170411
  Receipt Date: 20180115
  Transmission Date: 20180508
  Serious: Yes (Other)
  Sender: FDA-Public Use
  Company Number: PHHY2017CA042395

PATIENT
  Age: 45 Year
  Sex: Female

DRUGS (1)
  1. GILENYA [Suspect]
     Active Substance: FINGOLIMOD HYDROCHLORIDE
     Indication: PRODUCT USED FOR UNKNOWN INDICATION
     Dosage: UNK
     Route: 048
     Dates: start: 20170316

REACTIONS (10)
  - Eye swelling [Unknown]
  - Memory impairment [Not Recovered/Not Resolved]
  - Contusion [Unknown]
  - Mental impairment [Unknown]
  - Hypothyroidism [Unknown]
  - Decreased appetite [Unknown]
  - Vision blurred [Not Recovered/Not Resolved]
  - Peripheral swelling [Unknown]
  - Fatigue [Unknown]
  - Concomitant disease aggravated [Not Recovered/Not Resolved]

NARRATIVE: CASE EVENT DATE: 20170316
